FAERS Safety Report 14703729 (Version 24)
Quarter: 2020Q2

REPORT INFORMATION
  Report Type: Spontaneous
  Country: US (occurrence: US)
  Receive Date: 20180402
  Receipt Date: 20200602
  Transmission Date: 20200713
  Serious: Yes (Other)
  Sender: FDA-Public Use
  Company Number: US-PFIZER INC-2018128812

PATIENT
  Age: 77 Year
  Sex: Female
  Weight: 55 kg

DRUGS (4)
  1. FEMARA [Suspect]
     Active Substance: LETROZOLE
     Dosage: UNK
  2. IBRANCE [Suspect]
     Active Substance: PALBOCICLIB
     Dosage: UNK
     Dates: start: 2019
  3. IBRANCE [Suspect]
     Active Substance: PALBOCICLIB
     Indication: BREAST CANCER FEMALE
     Dosage: 125 MG
  4. IBRANCE [Suspect]
     Active Substance: PALBOCICLIB
     Dosage: 100 MG, CYCLIC (ONCE A DAY FOR 21 DAYS)/ (21 DAYS AND THEN OFF FOR 7 DAYS)
     Route: 048
     Dates: start: 20180326, end: 20191030

REACTIONS (45)
  - Eye haemorrhage [Unknown]
  - Arthralgia [Unknown]
  - Fear of falling [Unknown]
  - Decreased appetite [Not Recovered/Not Resolved]
  - Therapeutic response unexpected [Unknown]
  - Fall [Unknown]
  - Oropharyngeal discomfort [Unknown]
  - Feeling abnormal [Unknown]
  - Anorectal disorder [Unknown]
  - Weight increased [Recovering/Resolving]
  - Alopecia [Recovering/Resolving]
  - Arthritis [Unknown]
  - Neck pain [Unknown]
  - Visual impairment [Unknown]
  - Nerve injury [Unknown]
  - Blood count abnormal [Recovered/Resolved]
  - Macule [Not Recovered/Not Resolved]
  - Musculoskeletal discomfort [Unknown]
  - Retinal vascular occlusion [Unknown]
  - Memory impairment [Unknown]
  - Dizziness [Unknown]
  - Headache [Unknown]
  - Pre-existing condition improved [Unknown]
  - Oral discomfort [Unknown]
  - Anxiety [Unknown]
  - Uterine disorder [Unknown]
  - Fatigue [Not Recovered/Not Resolved]
  - Gait disturbance [Unknown]
  - Pruritus [Unknown]
  - Back pain [Unknown]
  - Hypoaesthesia [Unknown]
  - Nasopharyngitis [Unknown]
  - Confusional state [Unknown]
  - Contusion [Unknown]
  - Joint injury [Unknown]
  - Hypersomnia [Unknown]
  - Sexual dysfunction [Unknown]
  - Dry skin [Not Recovered/Not Resolved]
  - Asthenopia [Unknown]
  - Peripheral coldness [Unknown]
  - Hair colour changes [Unknown]
  - Sensitivity to weather change [Unknown]
  - Temperature intolerance [Unknown]
  - Pain in extremity [Unknown]
  - Lymphadenopathy [Unknown]

NARRATIVE: CASE EVENT DATE: 2018
